FAERS Safety Report 14331462 (Version 2)
Quarter: 2018Q1

REPORT INFORMATION
  Report Type: Report from Study
  Country: US (occurrence: US)
  Receive Date: 20171228
  Receipt Date: 20180112
  Transmission Date: 20180509
  Serious: Yes (Hospitalization)
  Sender: FDA-Public Use
  Company Number: US-BAYER-2017-202850

PATIENT
  Age: 58 Year
  Sex: Female
  Weight: 90.7 kg

DRUGS (7)
  1. DILTIAZEM. [Concomitant]
     Active Substance: DILTIAZEM
  2. TYVASO [Concomitant]
     Active Substance: TREPROSTINIL
     Dosage: UNK
  3. ADEMPAS [Suspect]
     Active Substance: RIOCIGUAT
     Indication: PULMONARY ARTERIAL HYPERTENSION
     Dosage: 2.5 MG, TID
     Route: 048
  4. MULTAQ [Suspect]
     Active Substance: DRONEDARONE
     Dosage: UNK
  5. ADEMPAS [Suspect]
     Active Substance: RIOCIGUAT
     Indication: PULMONARY ARTERIAL HYPERTENSION
     Dosage: 2.5 MG, TID
     Route: 048
  6. LOPRESSOR [Suspect]
     Active Substance: METOPROLOL TARTRATE
     Dosage: UNK
  7. ADEMPAS [Suspect]
     Active Substance: RIOCIGUAT
     Indication: PULMONARY ARTERIAL HYPERTENSION
     Dosage: UNK
     Dates: start: 20151111

REACTIONS (5)
  - Atrial fibrillation [Unknown]
  - Dyspnoea [Unknown]
  - Limb injury [Unknown]
  - Bacterial infection [Unknown]
  - Pneumonia [None]

NARRATIVE: CASE EVENT DATE: 201709
